FAERS Safety Report 8555463-7 (Version None)
Quarter: 2012Q3

REPORT INFORMATION
  Report Type: 
  Country: None (occurrence: None)
  Receive Date: 20120731
  Receipt Date: 20111108
  Transmission Date: 20120928
  Serious: No
  Sender: FDA-Public Use
  Company Number: US-ASTRAZENECA-2011SE20863

PATIENT
  Age: 85 Year
  Sex: Female

DRUGS (22)
  1. ZOLOFT [Suspect]
  2. SINRMET [Concomitant]
  3. SEROQUEL [Suspect]
     Route: 048
  4. ATIVAN [Suspect]
     Indication: NERVOUSNESS
     Dosage: PRN
  5. REQUIP [Concomitant]
     Dosage: 10-10.30 PM
  6. SEROQUEL [Suspect]
     Indication: CONFUSIONAL STATE
     Dosage: THREE TIMES A DAY (12.5MG-12.5MG-25MG)
     Route: 048
     Dates: start: 20110201
  7. ZOLOFT [Suspect]
  8. REQUIP [Concomitant]
     Dosage: 1MG 1ST WAKINGBETWEN 1 AM TO 6 AM, 1 MG 9 AM, MG 2 PM, 1 MG 5 PM
  9. SEROQUEL [Suspect]
     Indication: PARKINSON'S DISEASE
     Dosage: THREE TIMES A DAY (12.5MG-12.5MG-25MG)
     Route: 048
     Dates: start: 20110201
  10. REQUIP [Concomitant]
  11. BUSPAR [Concomitant]
  12. SEROQUEL [Suspect]
     Dosage: HALF TABLET EVERY MORNING, HALF TABLET 3 PM, I TABLET AT BEDTIME
     Route: 048
  13. SEROQUEL [Suspect]
     Dosage: HALF TABLET EVERY MORNING, HALF TABLET 3 PM, I TABLET AT BEDTIME
     Route: 048
  14. ATIVAN [Suspect]
     Indication: ANXIETY
     Dosage: PRN
  15. MIRALAX [Concomitant]
     Indication: CONSTIPATION
  16. IBUPROFEN (ADVIL) [Concomitant]
     Dosage: ONE AFTER BEAKFAST AND ONE AFTER DINNER
  17. SEROQUEL [Suspect]
     Indication: ANXIETY
     Dosage: THREE TIMES A DAY (12.5MG-12.5MG-25MG)
     Route: 048
     Dates: start: 20110201
  18. SEROQUEL [Suspect]
     Route: 048
  19. SEROQUEL [Suspect]
     Route: 048
  20. SEROQUEL [Suspect]
     Dosage: HALF TABLET EVERY MORNING, HALF TABLET 3 PM, I TABLET AT BEDTIME
     Route: 048
  21. STALEVO 100 [Concomitant]
     Dosage: 9PM AND 9AM
  22. IRON [Concomitant]

REACTIONS (18)
  - BALANCE DISORDER [None]
  - CONFUSIONAL STATE [None]
  - DISORIENTATION [None]
  - DRUG INEFFECTIVE [None]
  - HALLUCINATION [None]
  - PAIN [None]
  - FEELING ABNORMAL [None]
  - RESTLESS LEGS SYNDROME [None]
  - SEDATION [None]
  - SPINAL COLUMN STENOSIS [None]
  - ANXIETY [None]
  - DEMENTIA WITH LEWY BODIES [None]
  - OFF LABEL USE [None]
  - ABNORMAL BEHAVIOUR [None]
  - TREMOR [None]
  - INCOHERENT [None]
  - THERAPEUTIC RESPONSE UNEXPECTED [None]
  - PARKINSONISM [None]
